FAERS Safety Report 7183568-4 (Version None)
Quarter: 2010Q4

REPORT INFORMATION
  Report Type: 
  Country: None (occurrence: None)
  Receive Date: 20101220
  Receipt Date: 20101220
  Transmission Date: 20110411
  Serious: Yes (Other)
  Sender: FDA-Public Use
  Company Number: None

PATIENT
  Age: 63 Year
  Sex: Female
  Weight: 63.5036 kg

DRUGS (1)
  1. PANTOPRAZOLE SODIUM [Suspect]
     Indication: IMPAIRED GASTRIC EMPTYING
     Dosage: 40 MG QD BY MOUTH
     Route: 048
     Dates: start: 20091101, end: 20091201

REACTIONS (2)
  - DRUG INEFFECTIVE [None]
  - PRODUCT SUBSTITUTION ISSUE [None]
